FAERS Safety Report 11133172 (Version 14)
Quarter: 2017Q2

REPORT INFORMATION
  Report Type: Report from Study
  Country: FR (occurrence: FR)
  Receive Date: 20150522
  Receipt Date: 20170523
  Transmission Date: 20170829
  Serious: Yes (Other)
  Sender: FDA-Public Use
  Company Number: FR-AEGERION PHARMACEUTICAL INC.-AEGR001398

PATIENT

DRUGS (21)
  1. METRELEPTIN [Suspect]
     Active Substance: METRELEPTIN
     Dosage: 1.2 ML, QD
     Route: 058
     Dates: start: 20140514
  2. UMULINE RAPIDE [Concomitant]
     Active Substance: INSULIN ASPART
     Indication: ACQUIRED LIPOATROPHIC DIABETES
     Dosage: 8AM: 90UI, 12.30PM: 95UI, 4PM:75UI, 8PM:105UI, QD
     Route: 058
  3. LANSOPRAZOLE. [Concomitant]
     Active Substance: LANSOPRAZOLE
     Indication: PRODUCT USED FOR UNKNOWN INDICATION
     Dosage: 30 MG, QD
  4. METRELEPTIN [Suspect]
     Active Substance: METRELEPTIN
     Dosage: 1.4 ML, QD
     Route: 058
     Dates: start: 20141010
  5. LEVEMIR [Concomitant]
     Active Substance: INSULIN DETEMIR
     Indication: DIABETES MELLITUS
     Dosage: 25 MORNING, 35 EVENING
     Route: 058
  6. CELLCEPT [Concomitant]
     Active Substance: MYCOPHENOLATE MOFETIL\MYCOPHENOLATE MOFETIL HYDROCHLORIDE
     Indication: PROPHYLAXIS AGAINST TRANSPLANT REJECTION
     Dosage: 500 MG, BID
  7. UMULINE [Concomitant]
     Active Substance: INSULIN HUMAN
     Indication: DIABETES MELLITUS
     Dosage: 12-15-8-15
  8. ROVALCYTE [Concomitant]
     Active Substance: VALGANCICLOVIR HYDROCHLORIDE
     Indication: PRODUCT USED FOR UNKNOWN INDICATION
     Dosage: 450 MG, BID
  9. TAREG [Concomitant]
     Active Substance: VALSARTAN
     Indication: HYPERTENSION
     Dosage: 80 MG, QD
  10. METFORMINE [Concomitant]
     Active Substance: METFORMIN HYDROCHLORIDE
     Indication: DIABETES MELLITUS
     Dosage: 700 MG, TID
     Dates: start: 201310
  11. ENALAPRIL [Concomitant]
     Active Substance: ENALAPRIL
     Indication: HYPERTENSION
     Dosage: 50 MG, QD
     Dates: start: 201401
  12. ASPEGIC [Concomitant]
     Active Substance: ASPIRIN DL-LYSINE
     Indication: PRODUCT USED FOR UNKNOWN INDICATION
     Dosage: 250 MG, QD
  13. PREDNISONE. [Concomitant]
     Active Substance: PREDNISONE
     Indication: PROPHYLAXIS AGAINST TRANSPLANT REJECTION
     Dosage: 12.5 MG, QD
  14. INSULIN [Concomitant]
     Active Substance: INSULIN NOS
     Indication: DIABETES MELLITUS
     Dosage: 80 UNITS, QD
     Dates: start: 201209
  15. METRELEPTIN [Suspect]
     Active Substance: METRELEPTIN
     Dosage: 0.8 ML, QD
     Route: 058
     Dates: start: 20140212
  16. METRELEPTIN [Suspect]
     Active Substance: METRELEPTIN
     Dosage: 2 ML, QD
     Route: 058
     Dates: start: 201412, end: 20150102
  17. METRELEPTIN [Suspect]
     Active Substance: METRELEPTIN
     Indication: LIPODYSTROPHY ACQUIRED
     Dosage: 0.4 ML, QD
     Route: 058
     Dates: start: 20140109
  18. METRELEPTIN [Suspect]
     Active Substance: METRELEPTIN
     Dosage: UNK
     Route: 058
     Dates: start: 20170309
  19. LEVEMIR [Concomitant]
     Active Substance: INSULIN DETEMIR
     Dosage: MORNING 25 EVENING 35
  20. ADVAGRAF [Concomitant]
     Active Substance: TACROLIMUS
     Indication: PROPHYLAXIS AGAINST TRANSPLANT REJECTION
     Dosage: 3 MG, QD
  21. BACTRIM [Concomitant]
     Active Substance: SULFAMETHOXAZOLE\TRIMETHOPRIM
     Indication: PROPHYLAXIS
     Dosage: 400 MG, QD

REACTIONS (9)
  - Drug ineffective [Unknown]
  - Hyperphagia [Unknown]
  - Hepatic steatosis [Not Recovered/Not Resolved]
  - Neutralising antibodies positive [Recovered/Resolved]
  - Diabetes mellitus [Recovered/Resolved]
  - Injection site inflammation [Recovered/Resolved]
  - Insulin resistance [Recovered/Resolved]
  - Weight increased [Unknown]
  - Hepatomegaly [Unknown]

NARRATIVE: CASE EVENT DATE: 20150604
